FAERS Safety Report 5718856-9 (Version None)
Quarter: 2008Q2

REPORT INFORMATION
  Report Type: 
  Country: None (occurrence: None)
  Receive Date: 20080425
  Receipt Date: 20080417
  Transmission Date: 20081010
  Serious: Yes (Hospitalization)
  Sender: FDA-Public Use
  Company Number: US-PFIZER INC-2008034332

PATIENT
  Sex: Female

DRUGS (5)
  1. CELEBREX [Suspect]
  2. LEXAPRO [Concomitant]
  3. LEVOXYL [Concomitant]
  4. MACROBID [Concomitant]
  5. ALL OTHER THERAPEUTIC PRODUCTS [Concomitant]

REACTIONS (2)
  - APHASIA [None]
  - SWOLLEN TONGUE [None]
